FAERS Safety Report 11809454 (Version 3)
Quarter: 2016Q1

REPORT INFORMATION
  Report Type: Spontaneous
  Country: US (occurrence: US)
  Receive Date: 20151208
  Receipt Date: 20160226
  Transmission Date: 20160525
  Serious: No
  Sender: FDA-Public Use
  Company Number: US-ASTRAZENECA-2015SF22087

PATIENT
  Age: 71 Year
  Sex: Male
  Weight: 91 kg

DRUGS (10)
  1. PRILOSEC [Suspect]
     Active Substance: OMEPRAZOLE MAGNESIUM
     Indication: REFLUX LARYNGITIS
     Route: 048
     Dates: end: 20151115
  2. NEXIUM 24HR [Suspect]
     Active Substance: ESOMEPRAZOLE MAGNESIUM
     Indication: REFLUX LARYNGITIS
     Route: 048
     Dates: start: 20151116, end: 20151121
  3. NEXIUM 24HR [Suspect]
     Active Substance: ESOMEPRAZOLE MAGNESIUM
     Indication: REFLUX LARYNGITIS
     Route: 048
  4. NEXIUM 24HR [Suspect]
     Active Substance: ESOMEPRAZOLE MAGNESIUM
     Indication: REFLUX LARYNGITIS
     Dosage: TAKING TWO A DAY FOR 40MG, EITHER JUL-2015 OR AUG-2015
     Route: 048
  5. NEXIUM 24HR [Suspect]
     Active Substance: ESOMEPRAZOLE MAGNESIUM
     Indication: REFLUX LARYNGITIS
     Route: 048
     Dates: start: 2015, end: 2015
  6. PREDNISONE. [Concomitant]
     Active Substance: PREDNISONE
     Indication: PNEUMONIA
     Dates: start: 201511, end: 20151114
  7. NEXIUM 24HR [Suspect]
     Active Substance: ESOMEPRAZOLE MAGNESIUM
     Indication: REFLUX LARYNGITIS
     Route: 048
     Dates: start: 20150902, end: 20151115
  8. PRILOSEC [Suspect]
     Active Substance: OMEPRAZOLE MAGNESIUM
     Indication: REFLUX LARYNGITIS
     Route: 048
     Dates: start: 20151122
  9. NEXIUM 24HR [Suspect]
     Active Substance: ESOMEPRAZOLE MAGNESIUM
     Indication: REFLUX LARYNGITIS
     Route: 048
     Dates: start: 20151122
  10. Z PACK [Concomitant]
     Active Substance: AZITHROMYCIN DIHYDRATE
     Indication: PNEUMONIA
     Dates: start: 201511, end: 20151114

REACTIONS (11)
  - Dysgeusia [Not Recovered/Not Resolved]
  - Reflux laryngitis [Unknown]
  - Condition aggravated [Not Recovered/Not Resolved]
  - Product use issue [Unknown]
  - Secretion discharge [Unknown]
  - Off label use [Unknown]
  - Sinusitis [Unknown]
  - Paraesthesia oral [Not Recovered/Not Resolved]
  - Product taste abnormal [Not Recovered/Not Resolved]
  - Respiratory tract congestion [Unknown]
  - Atypical pneumonia [Recovered/Resolved]

NARRATIVE: CASE EVENT DATE: 2015
